FAERS Safety Report 14625496 (Version 1)
Quarter: 2018Q1

REPORT INFORMATION
  Report Type: Spontaneous
  Country: US (occurrence: US)
  Receive Date: 20180312
  Receipt Date: 20180312
  Transmission Date: 20180509
  Serious: No
  Sender: FDA-Public Use
  Company Number: US-ALLERGAN-1731464US

PATIENT
  Age: 46 Year
  Sex: Female

DRUGS (5)
  1. OXYTROL [Suspect]
     Active Substance: OXYBUTYNIN
     Dosage: UNK
  2. OXYTROL [Suspect]
     Active Substance: OXYBUTYNIN
     Dosage: 1 DF, BI-WEEKLY
     Route: 062
     Dates: start: 201707, end: 201707
  3. OXYTROL [Suspect]
     Active Substance: OXYBUTYNIN
     Dosage: UNK
  4. OXYTROL [Suspect]
     Active Substance: OXYBUTYNIN
     Indication: HYPERTONIC BLADDER
     Dosage: 1 DF, BI-WEEKLY
     Route: 062
     Dates: start: 201707, end: 201707
  5. OXYTROL [Suspect]
     Active Substance: OXYBUTYNIN
     Dosage: 1 DF, BI-WEEKLY
     Route: 062
     Dates: start: 201707, end: 201707

REACTIONS (4)
  - Drug ineffective [Unknown]
  - Product label issue [Unknown]
  - Application site scar [Not Recovered/Not Resolved]
  - Product adhesion issue [Unknown]

NARRATIVE: CASE EVENT DATE: 201707
